FAERS Safety Report 9126979 (Version 3)
Quarter: 2013Q2

REPORT INFORMATION
  Report Type: Spontaneous
  Country: BR (occurrence: BR)
  Receive Date: 20130228
  Receipt Date: 20130517
  Transmission Date: 20140414
  Serious: Yes (Other)
  Sender: FDA-Public Use
  Company Number: PHHY2013BR017909

PATIENT
  Age: 61 Year
  Sex: Female

DRUGS (7)
  1. VOLTAREN SR [Suspect]
     Indication: INFLAMMATION
     Dosage: 3 DF, PER DAY (THREE 75 MG TABLETS, DAILY)
     Route: 048
  2. VOLTAREN SR [Suspect]
     Dosage: 50 MG, UNK
  3. VOLTAREN [Suspect]
     Indication: TENSION
     Dosage: 50 MG, UNK
     Dates: start: 1987
  4. VOLTAREN [Suspect]
     Dosage: 100 MG, UNK
  5. BROMAZEPAM [Suspect]
     Dosage: 0.5 DF, DAILY
  6. HIDANTAL [Suspect]
     Indication: CONVULSION
     Dosage: 100 MG, DAILY
     Route: 048
  7. DOMPERIDONE [Concomitant]
     Indication: GASTRIC DISORDER
     Dosage: 0.5 DF, PRN

REACTIONS (25)
  - Sciatica [Recovered/Resolved]
  - Hypokinesia [Recovering/Resolving]
  - Tremor [Recovered/Resolved]
  - Somnolence [Unknown]
  - Headache [Unknown]
  - Memory impairment [Recovering/Resolving]
  - Aneurysm [Unknown]
  - Bipolar disorder [Unknown]
  - Ruptured cerebral aneurysm [Unknown]
  - Convulsion [Unknown]
  - Cold sweat [Recovered/Resolved]
  - Asthenia [Recovered/Resolved]
  - Food intolerance [Unknown]
  - Pain [Unknown]
  - Hyperacusis [Unknown]
  - Photophobia [Unknown]
  - Eating disorder [Unknown]
  - Thyroid disorder [Recovered/Resolved]
  - Vitamin D deficiency [Not Recovered/Not Resolved]
  - Vitamin B12 deficiency [Not Recovered/Not Resolved]
  - Blood cholesterol increased [Recovered/Resolved]
  - Pulpitis dental [Unknown]
  - Tooth disorder [Unknown]
  - Tension [Unknown]
  - Vomiting [Unknown]
